FAERS Safety Report 4347372-4 (Version None)
Quarter: 2004Q2

REPORT INFORMATION
  Report Type: 
  Country: None (occurrence: None)
  Receive Date: 20040421
  Receipt Date: 20030905
  Transmission Date: 20050107
  Serious: Yes (Other)
  Sender: FDA-Public Use
  Company Number: 1553-233-2

PATIENT
  Sex: Male

DRUGS (1)
  1. DEXFERRUM [Suspect]

REACTIONS (2)
  - CHEST DISCOMFORT [None]
  - DYSPNOEA [None]
